FAERS Safety Report 10578665 (Version 1)
Quarter: 2014Q4

REPORT INFORMATION
  Report Type: Spontaneous
  Country: US (occurrence: None)
  Receive Date: 20141111
  Receipt Date: 20141111
  Transmission Date: 20150529
  Serious: Yes (Other)
  Sender: FDA-Public Use
  Company Number: None

PATIENT
  Age: 44 Year
  Sex: Female
  Weight: 69.4 kg

DRUGS (1)
  1. FENTANYL 50 MCG/HR UNKNOWN [Suspect]
     Active Substance: FENTANYL
     Indication: PAIN
     Dosage: 1, 1 EVERY 72 HOURS, APPLIED AS MEDICATED PATCH TO SKIN
     Dates: start: 20141101, end: 20141107

REACTIONS (4)
  - Application site burn [None]
  - Product substitution issue [None]
  - Product adhesion issue [None]
  - Product quality issue [None]

NARRATIVE: CASE EVENT DATE: 20141102
